FAERS Safety Report 20500313 (Version 4)
Quarter: 2022Q3

REPORT INFORMATION
  Report Type: Report from Study
  Country: AT (occurrence: AT)
  Receive Date: 20220222
  Receipt Date: 20220727
  Transmission Date: 20221026
  Serious: Yes (Hospitalization)
  Sender: FDA-Public Use
  Company Number: AT-ABBVIE-22K-009-4286576-00

PATIENT
  Age: 24 Year
  Sex: Female
  Weight: 67 kg

DRUGS (16)
  1. RINVOQ [Suspect]
     Active Substance: UPADACITINIB
     Indication: Rheumatoid arthritis
     Dosage: DAILY
     Route: 048
     Dates: start: 20210727, end: 20220130
  2. RINVOQ [Suspect]
     Active Substance: UPADACITINIB
     Route: 048
     Dates: start: 20220223
  3. COVID-19 VACCINE [Concomitant]
     Indication: COVID-19 immunisation
     Dosage: FIRST DOSE
     Route: 030
     Dates: start: 20211028, end: 20211028
  4. COVID-19 VACCINE [Concomitant]
     Dosage: SECOND DOSE
     Route: 030
     Dates: start: 20211118, end: 20211118
  5. ACYCLOVIR [Concomitant]
     Active Substance: ACYCLOVIR
     Indication: Herpes ophthalmic
     Route: 042
     Dates: start: 20220201, end: 20220205
  6. VALACYCLOVIR HYDROCHLORIDE [Concomitant]
     Active Substance: VALACYCLOVIR HYDROCHLORIDE
     Indication: Herpes ophthalmic
     Dosage: ANTIVIRAL THERAPY
     Route: 048
     Dates: start: 20220130, end: 20220207
  7. METHOTREXATE [Concomitant]
     Active Substance: METHOTREXATE
     Indication: Rheumatoid arthritis
     Dosage: WEEKLY
     Route: 058
     Dates: start: 202009
  8. METHOTREXATE [Concomitant]
     Active Substance: METHOTREXATE
     Dosage: ONCE WEEKLY
     Route: 058
     Dates: start: 20210726, end: 20210927
  9. METHOTREXATE [Concomitant]
     Active Substance: METHOTREXATE
     Dosage: ONCE WEEKLY
     Route: 058
     Dates: start: 20210928, end: 20220630
  10. METHOTREXATE [Concomitant]
     Active Substance: METHOTREXATE
     Dosage: ONCE WEEKLY
     Route: 058
     Dates: start: 20220701
  11. METHYLPREDNISOLONE [Concomitant]
     Active Substance: METHYLPREDNISOLONE
     Indication: Ophthalmic herpes zoster
     Route: 042
     Dates: start: 20220201, end: 20220205
  12. FOLIC ACID [Concomitant]
     Active Substance: FOLIC ACID
     Indication: Prophylaxis
     Dosage: WEEKLY
     Route: 048
     Dates: start: 202108
  13. ACETAMINOPHEN [Concomitant]
     Active Substance: ACETAMINOPHEN
     Indication: COVID-19
     Dosage: ONCE
     Route: 048
     Dates: start: 20220509, end: 20220509
  14. CORTISONE [Concomitant]
     Active Substance: CORTISONE
     Indication: Rheumatoid arthritis
     Route: 048
     Dates: start: 20220215, end: 20220216
  15. CORTISONE [Concomitant]
     Active Substance: CORTISONE
     Route: 048
     Dates: start: 20220217, end: 20220219
  16. CORTISONE [Concomitant]
     Active Substance: CORTISONE
     Route: 048
     Dates: start: 20220220, end: 20220224

REACTIONS (5)
  - Herpes ophthalmic [Recovering/Resolving]
  - Pain [Unknown]
  - Swelling of eyelid [Unknown]
  - Scab [Recovering/Resolving]
  - COVID-19 [Recovered/Resolved]

NARRATIVE: CASE EVENT DATE: 20220126
